FAERS Safety Report 8241200-2 (Version None)
Quarter: 2012Q1

REPORT INFORMATION
  Report Type: 
  Country: None (occurrence: None)
  Receive Date: 20120328
  Receipt Date: 20120319
  Transmission Date: 20120608
  Serious: Yes (Other)
  Sender: FDA-Public Use
  Company Number: US-ELI_LILLY_AND_COMPANY-US201203006772

PATIENT
  Age: 50 Year
  Sex: Male

DRUGS (1)
  1. EFFIENT [Suspect]

REACTIONS (1)
  - DEEP VEIN THROMBOSIS [None]
